FAERS Safety Report 4877916-5 (Version None)
Quarter: 2006Q1

REPORT INFORMATION
  Report Type: 
  Country: None (occurrence: None)
  Receive Date: 20060110
  Receipt Date: 20060102
  Transmission Date: 20060701
  Serious: Yes (Hospitalization)
  Sender: FDA-Public Use
  Company Number: 2006001746

PATIENT
  Sex: Female

DRUGS (3)
  1. LIPITOR [Suspect]
     Indication: ILL-DEFINED DISORDER
     Dosage: 5 MG (10 MG, 1/2 TABLET DAILY), ORAL
     Route: 048
     Dates: start: 20051101
  2. PLAVIX [Concomitant]
  3. ALBYL-E (ACETYLSALICYLIC ACID, MAGNESIUM OXIDE) [Concomitant]

REACTIONS (4)
  - HEAD DISCOMFORT [None]
  - STENT PLACEMENT [None]
  - STOMACH DISCOMFORT [None]
  - WRONG TECHNIQUE IN DRUG USAGE PROCESS [None]
